FAERS Safety Report 9793109 (Version 1)
Quarter: 2013Q4

REPORT INFORMATION
  Report Type: Spontaneous
  Country: US (occurrence: None)
  Receive Date: 20131231
  Receipt Date: 20131231
  Transmission Date: 20140711
  Serious: Yes (Hospitalization)
  Sender: FDA-Public Use
  Company Number: None

PATIENT
  Age: 77 Year
  Sex: Male
  Weight: 77.4 kg

DRUGS (1)
  1. METOPROLOL [Suspect]
     Indication: CARDIAC FAILURE CONGESTIVE
     Route: 048
     Dates: start: 20131205, end: 20131211

REACTIONS (6)
  - Dyspnoea [None]
  - Weight increased [None]
  - Sinus bradycardia [None]
  - Fluid overload [None]
  - Bradycardia [None]
  - Fatigue [None]
